FAERS Safety Report 8615090 (Version 4)
Quarter: 2013Q1

REPORT INFORMATION
  Report Type: Spontaneous
  Country: JP (occurrence: JP)
  Receive Date: 20120614
  Receipt Date: 20130123
  Transmission Date: 20140127
  Serious: Yes (Death)
  Sender: FDA-Public Use
  Company Number: JP-BAYER-2012-055735

PATIENT
  Age: 77 Year
  Sex: Male

DRUGS (2)
  1. NEXAVAR [Suspect]
     Indication: HEPATOCELLULAR CARCINOMA
     Dosage: 400 MG, BID
     Route: 048
  2. NEXAVAR [Suspect]
     Indication: HEPATOCELLULAR CARCINOMA
     Dosage: 400 MG DAILY
     Route: 048

REACTIONS (7)
  - Interstitial lung disease [Fatal]
  - Hepatic function abnormal [None]
  - Hypertension [None]
  - Palmar-plantar erythrodysaesthesia syndrome [None]
  - Fatigue [None]
  - Pyrexia [None]
  - Dyspnoea [None]
